FAERS Safety Report 9316659 (Version 2)
Quarter: 2013Q3

REPORT INFORMATION
  Report Type: Report from Study
  Country: US (occurrence: US)
  Receive Date: 20130530
  Receipt Date: 20130711
  Transmission Date: 20140515
  Serious: Yes (Hospitalization, Other)
  Sender: FDA-Public Use
  Company Number: US-ASTELLAS-2013US005503

PATIENT
  Age: 27 Year
  Sex: Male
  Weight: 90 kg

DRUGS (14)
  1. ERLOTINIB TABLET [Suspect]
     Indication: RENAL CELL CARCINOMA
     Dosage: 150 MG, UID/QD
     Route: 048
     Dates: start: 20130304, end: 20130501
  2. TIVANTINIB [Suspect]
     Indication: RENAL CELL CARCINOMA
     Dosage: 360 MG, BID
     Route: 048
     Dates: start: 20130304, end: 20130502
  3. MELATONIN [Concomitant]
     Indication: PRODUCT USED FOR UNKNOWN INDICATION
     Dosage: 10 MG, UID/QD
     Route: 048
  4. COQ-10 [Concomitant]
     Indication: PRODUCT USED FOR UNKNOWN INDICATION
     Dosage: 100 MG, UID/QD
     Route: 048
  5. CALCIUM WITH VITAMIN D             /00944201/ [Concomitant]
     Indication: PRODUCT USED FOR UNKNOWN INDICATION
     Dosage: 600 MG, UID/QD
     Route: 048
  6. MILK THISTLE                       /01131701/ [Concomitant]
     Indication: PRODUCT USED FOR UNKNOWN INDICATION
     Dosage: 240 MG, UID/QD
     Route: 048
  7. AMBIEN [Concomitant]
     Indication: INSOMNIA
     Dosage: 5-10 MG, PRN
     Route: 048
  8. DENOSUMAB [Concomitant]
     Indication: PRODUCT USED FOR UNKNOWN INDICATION
     Dosage: 120 MG, MONTHLY
     Route: 058
  9. ADVIL                              /00109201/ [Concomitant]
     Indication: PYREXIA
     Dosage: 2 TABS, PRN
     Route: 048
  10. METOPROLOL [Concomitant]
     Indication: PRODUCT USED FOR UNKNOWN INDICATION
     Dosage: 25 MG, UID/QD
     Route: 048
  11. EFFEXOR [Concomitant]
     Indication: PRODUCT USED FOR UNKNOWN INDICATION
     Dosage: 37.5 MG, UID/QD
     Route: 048
  12. OXYCONTIN [Concomitant]
     Indication: PRODUCT USED FOR UNKNOWN INDICATION
     Dosage: 10 MG, Q12 HOURS
     Route: 048
  13. OXYCODONE [Concomitant]
     Indication: PRODUCT USED FOR UNKNOWN INDICATION
     Dosage: 5 MG, PRN
     Route: 048
  14. TORISEL [Concomitant]
     Indication: PRODUCT USED FOR UNKNOWN INDICATION
     Dosage: 25 MG, WEEKLY
     Route: 042

REACTIONS (4)
  - Off label use [Unknown]
  - Large intestinal stenosis [Recovered/Resolved]
  - Malignant neoplasm progression [Recovered/Resolved]
  - Small intestinal obstruction [Recovered/Resolved with Sequelae]
